FAERS Safety Report 22261588 (Version 1)
Quarter: 2023Q2

REPORT INFORMATION
  Report Type: Report from Study
  Country: US (occurrence: US)
  Receive Date: 20230427
  Receipt Date: 20230427
  Transmission Date: 20230721
  Serious: Yes (Life-Threatening, Hospitalization, Disabling, Other)
  Sender: FDA-Public Use
  Company Number: US-ABBVIE-4741174

PATIENT
  Sex: Female

DRUGS (4)
  1. HUMIRA [Suspect]
     Active Substance: ADALIMUMAB
     Indication: Product used for unknown indication
     Route: 058
  2. ALDURAZYME [Suspect]
     Active Substance: LARONIDASE
     Indication: Mucopolysaccharidosis I
     Dosage: 37.70MG
     Route: 042
     Dates: start: 20050517
  3. ALDURAZYME [Suspect]
     Active Substance: LARONIDASE
     Indication: Mucopolysaccharidosis I
     Dosage: 37.70MG
     Route: 042
     Dates: start: 20130110
  4. ALDURAZYME [Suspect]
     Active Substance: LARONIDASE
     Indication: Mucopolysaccharidosis I
     Dosage: DOSE INCREASE
     Route: 042

REACTIONS (13)
  - Colorectal cancer metastatic [Unknown]
  - Pulmonary mass [Unknown]
  - Metastases to lung [Unknown]
  - Malignant neoplasm of unknown primary site [Unknown]
  - Central nervous system infection [Unknown]
  - Abdominal discomfort [Not Recovered/Not Resolved]
  - Stoma prolapse [Unknown]
  - Vomiting [Unknown]
  - Headache [Unknown]
  - Gastric disorder [Not Recovered/Not Resolved]
  - Hernia [Unknown]
  - Feeding disorder [Unknown]
  - Shunt malfunction [Unknown]
